FAERS Safety Report 6801698-0 (Version None)
Quarter: 2010Q2

REPORT INFORMATION
  Report Type: 
  Country: None (occurrence: None)
  Receive Date: 20100629
  Receipt Date: 20100624
  Transmission Date: 20101027
  Serious: Yes (Hospitalization)
  Sender: FDA-Public Use
  Company Number: US-BRISTOL-MYERS SQUIBB COMPANY-15164841

PATIENT
  Age: 68 Year
  Sex: Female
  Weight: 52 kg

DRUGS (3)
  1. CARBOPLATIN [Suspect]
     Indication: NON-SMALL CELL LUNG CANCER
     Dates: start: 20100301, end: 20100513
  2. TAXOL [Suspect]
     Indication: NON-SMALL CELL LUNG CANCER
     Dates: start: 20100513, end: 20100513
  3. RADIATION THERAPY [Suspect]
     Indication: NON-SMALL CELL LUNG CANCER
     Dosage: 1DF=74GY FRACTIONS:37 ELAPSED DYS:56
     Dates: start: 20100301, end: 20100426

REACTIONS (8)
  - ATRIAL FIBRILLATION [None]
  - DECREASED APPETITE [None]
  - DYSPHAGIA [None]
  - HYPONATRAEMIA [None]
  - MUSCULAR WEAKNESS [None]
  - PNEUMOTHORAX [None]
  - ULCER [None]
  - WEIGHT DECREASED [None]
